FAERS Safety Report 18200445 (Version 11)
Quarter: 2025Q2

REPORT INFORMATION
  Report Type: Report from Study
  Country: US (occurrence: US)
  Receive Date: 20200827
  Receipt Date: 20250611
  Transmission Date: 20250716
  Serious: Yes (Hospitalization, Other)
  Sender: TAKEDA
  Company Number: US-SHIRE-US202027614

PATIENT
  Sex: Female
  Weight: 82.09 kg

DRUGS (33)
  1. HUMAN IMMUNOGLOBULIN G\HYALURONIDASE RECOMBINANT HUMAN [Suspect]
     Active Substance: HUMAN IMMUNOGLOBULIN G\HYALURONIDASE (HUMAN RECOMBINANT)
     Indication: Rheumatoid arthritis
     Dosage: 80 GRAM, Q4WEEKS
  2. HUMAN IMMUNOGLOBULIN G\HYALURONIDASE RECOMBINANT HUMAN [Suspect]
     Active Substance: HUMAN IMMUNOGLOBULIN G\HYALURONIDASE (HUMAN RECOMBINANT)
     Indication: Immunodeficiency common variable
     Dosage: 80 GRAM, Q4WEEKS
     Dates: start: 20190930
  3. HUMAN IMMUNOGLOBULIN G\HYALURONIDASE RECOMBINANT HUMAN [Suspect]
     Active Substance: HUMAN IMMUNOGLOBULIN G\HYALURONIDASE (HUMAN RECOMBINANT)
     Dosage: 70 GRAM, Q3WEEKS
  4. PREDNISONE [Suspect]
     Active Substance: PREDNISONE
     Indication: Product used for unknown indication
  5. AMLODIPINE [Concomitant]
     Active Substance: AMLODIPINE BESYLATE
  6. XELJANZ [Concomitant]
     Active Substance: TOFACITINIB CITRATE
  7. BUDESONIDE [Concomitant]
     Active Substance: BUDESONIDE
  8. FLUTICASONE FUROATE\VILANTEROL TRIFENATATE [Concomitant]
     Active Substance: FLUTICASONE FUROATE\VILANTEROL TRIFENATATE
  9. ACETAMINOPHEN [Concomitant]
     Active Substance: ACETAMINOPHEN
  10. DIPHENHYDRAMINE [Concomitant]
     Active Substance: DIPHENHYDRAMINE
  11. SODIUM CHLORIDE [Concomitant]
     Active Substance: SODIUM CHLORIDE
  12. EPINEPHRINE [Concomitant]
     Active Substance: EPINEPHRINE
  13. VITAMIN D2 [Concomitant]
     Active Substance: ERGOCALCIFEROL
  14. CYMBALTA [Concomitant]
     Active Substance: DULOXETINE HYDROCHLORIDE
  15. XALATAN [Concomitant]
     Active Substance: LATANOPROST
  16. LIPITOR [Concomitant]
     Active Substance: ATORVASTATIN CALCIUM
  17. SYNTHROID [Concomitant]
     Active Substance: LEVOTHYROXINE SODIUM
  18. PANTOPRAZOLE SODIUM [Concomitant]
     Active Substance: PANTOPRAZOLE SODIUM
  19. HYDROCHLOROTHIAZIDE [Concomitant]
     Active Substance: HYDROCHLOROTHIAZIDE
  20. LIDOCAINE [Concomitant]
     Active Substance: LIDOCAINE
  21. ORENCIA [Concomitant]
     Active Substance: ABATACEPT
  22. AMLODIPINE BESYLATE [Concomitant]
     Active Substance: AMLODIPINE BESYLATE
  23. FOLIC ACID [Concomitant]
     Active Substance: FOLIC ACID
  24. VITAMIN D [Concomitant]
     Active Substance: VITAMIN D NOS
  25. RASUVO [Concomitant]
     Active Substance: METHOTREXATE SODIUM
  26. ACTEMRA [Concomitant]
     Active Substance: TOCILIZUMAB
  27. GENTAMICIN SULFATE [Concomitant]
     Active Substance: GENTAMICIN SULFATE
  28. ATORVASTATIN CALCIUM [Concomitant]
     Active Substance: ATORVASTATIN CALCIUM
  29. COLCHICINE [Concomitant]
     Active Substance: COLCHICINE
  30. RINVOQ [Concomitant]
     Active Substance: UPADACITINIB
  31. MOUNJARO [Concomitant]
     Active Substance: TIRZEPATIDE
  32. SODIUM BICARBONATE\SODIUM CHLORIDE [Concomitant]
     Active Substance: SODIUM BICARBONATE\SODIUM CHLORIDE
  33. DIPHENHYDRAMINE HYDROCHLORIDE [Concomitant]
     Active Substance: DIPHENHYDRAMINE HYDROCHLORIDE

REACTIONS (8)
  - Pneumonia [Unknown]
  - Contusion [Unknown]
  - Anaemia postoperative [Unknown]
  - Weight fluctuation [Unknown]
  - Influenza [Unknown]
  - Sinusitis [Unknown]
  - Infusion site discharge [Unknown]
  - Fatigue [Unknown]
